FAERS Safety Report 5191696-8 (Version None)
Quarter: 2006Q4

REPORT INFORMATION
  Report Type: 
  Country: None (occurrence: None)
  Receive Date: 20061226
  Receipt Date: 20061211
  Transmission Date: 20070319
  Serious: Yes (Life-Threatening)
  Sender: FDA-Public Use
  Company Number: NZ-MERCK-0612NZL00028

PATIENT
  Age: 77 Year
  Sex: Female

DRUGS (4)
  1. FOSAMAX [Suspect]
     Indication: OSTEOPOROSIS
     Route: 048
     Dates: start: 20040601, end: 20041001
  2. ASPIRIN [Suspect]
     Route: 048
     Dates: start: 20030901, end: 20041119
  3. HYDROCORTISONE [Concomitant]
     Indication: PITUITARY TUMOUR
     Route: 048
  4. LEVOTHYROXINE SODIUM [Concomitant]
     Route: 048

REACTIONS (1)
  - PEPTIC ULCER HAEMORRHAGE [None]
